FAERS Safety Report 4377968-5 (Version None)
Quarter: 2004Q2

REPORT INFORMATION
  Report Type: 
  Country: None (occurrence: None)
  Receive Date: 20040616
  Receipt Date: 20040602
  Transmission Date: 20050107
  Serious: Yes (Other)
  Sender: FDA-Public Use
  Company Number: PHNU2004DE01998

PATIENT
  Age: 62 Year

DRUGS (3)
  1. PROVAS COMP [Suspect]
     Route: 048
  2. CONCOR PLUS                             /SCH/ [Concomitant]
     Route: 048
  3. OLMESARTAN [Concomitant]

REACTIONS (2)
  - ARRHYTHMIA [None]
  - HYPERTENSIVE CRISIS [None]
